FAERS Safety Report 4451667-3 (Version None)
Quarter: 2004Q3

REPORT INFORMATION
  Report Type: 
  Country: None (occurrence: None)
  Receive Date: 20040915
  Receipt Date: 20040913
  Transmission Date: 20050211
  Serious: Yes (Life-Threatening)
  Sender: FDA-Public Use
  Company Number: 04-0068NI

PATIENT
  Age: 46 Year
  Sex: Male

DRUGS (2)
  1. NITROLINGUAL PUMPSPRAY [Suspect]
     Indication: CHEST PAIN
     Dosage: SL
     Route: 060
     Dates: start: 20040630, end: 20040630
  2. ASPIRIN [Concomitant]

REACTIONS (2)
  - OBSTRUCTIVE AIRWAYS DISORDER [None]
  - SWOLLEN TONGUE [None]
